FAERS Safety Report 6419379-4 (Version None)
Quarter: 2009Q4

REPORT INFORMATION
  Report Type: 
  Country: None (occurrence: None)
  Receive Date: 20091029
  Receipt Date: 20091021
  Transmission Date: 20100525
  Serious: Yes (Death)
  Sender: FDA-Public Use
  Company Number: US-ASTRAZENECA-2009SE22137

PATIENT
  Age: 23 Year
  Sex: Male

DRUGS (2)
  1. SEROQUEL XR [Suspect]
     Indication: SCHIZOAFFECTIVE DISORDER
     Route: 048
  2. DEPAKOTE [Concomitant]

REACTIONS (2)
  - COMPLETED SUICIDE [None]
  - OVERDOSE [None]
